FAERS Safety Report 4967863-2 (Version None)
Quarter: 2006Q2

REPORT INFORMATION
  Report Type: 
  Country: None (occurrence: None)
  Receive Date: 20060404
  Receipt Date: 20060327
  Transmission Date: 20061013
  Serious: Yes (Life-Threatening)
  Sender: FDA-Public Use
  Company Number: US017165

PATIENT
  Age: 60 Year
  Sex: Female
  Weight: 66 kg

DRUGS (5)
  1. FENTANYL [Suspect]
  2. ATRACURIUM [Suspect]
     Indication: ANAESTHESIA
     Dosage: 40 MG QD INTRAVENOUS
     Route: 042
     Dates: start: 20060314
  3. PROPOFOL [Suspect]
     Indication: ANAESTHESIA
  4. BECLAZONE [Concomitant]
  5. CHLORPHENIRAMINE MALEATE [Concomitant]

REACTIONS (3)
  - ANAPHYLACTIC REACTION [None]
  - ERYTHEMA [None]
  - HYPOTENSION [None]
